FAERS Safety Report 20047547 (Version 2)
Quarter: 2021Q4

REPORT INFORMATION
  Report Type: Report from Study
  Country: MX (occurrence: MX)
  Receive Date: 20211109
  Receipt Date: 20211113
  Transmission Date: 20220303
  Serious: Yes (Death, Hospitalization)
  Sender: FDA-Public Use
  Company Number: MX-NOVARTISPH-NVSC2021MX255402

PATIENT
  Age: 65 Year
  Sex: Female
  Weight: 72 kg

DRUGS (5)
  1. ELTROMBOPAG OLAMINE [Suspect]
     Active Substance: ELTROMBOPAG OLAMINE
     Indication: Platelet count decreased
     Dosage: 1 DF OF 25 MG, QD (THE DOSE VARIATES, 1 DAILY OR 1 EVERY 72 HOURS/ 1 EVERY THIRD DAY)
     Route: 048
     Dates: start: 202006
  2. ELTROMBOPAG OLAMINE [Suspect]
     Active Substance: ELTROMBOPAG OLAMINE
     Dosage: 1 DF (THE DOSE VARIATES, 1 DAILY OR 1 EVERY 72 HOURS/ 1 EVERY THIRD DAY)
     Route: 048
     Dates: start: 202006, end: 202105
  3. AZATHIOPRINE [Concomitant]
     Active Substance: AZATHIOPRINE
     Indication: Platelet count decreased
     Dosage: 1 DF 1 DF, QD (50 MG, EVERY 24 HOURS)
     Route: 048
     Dates: start: 202105, end: 20210904
  4. PREDNISONE [Concomitant]
     Active Substance: PREDNISONE
     Indication: Platelet count decreased
     Dosage: 1 DF (5 MG, EVERY 24 HRS)
     Route: 048
     Dates: start: 202105, end: 20210904
  5. INSULIN NOS [Concomitant]
     Active Substance: INSULIN NOS
     Indication: Diabetes mellitus
     Dosage: 36 IU
     Route: 058
     Dates: start: 201903, end: 20190904

REACTIONS (2)
  - COVID-19 [Fatal]
  - Inappropriate schedule of product administration [Unknown]

NARRATIVE: CASE EVENT DATE: 20200601
